FAERS Safety Report 7599848-4 (Version None)
Quarter: 2011Q2

REPORT INFORMATION
  Report Type: 
  Country: None (occurrence: None)
  Receive Date: 20110629
  Receipt Date: 20110614
  Transmission Date: 20111010
  Serious: Yes (Other)
  Sender: FDA-Public Use
  Company Number: AUR-APL-2011-00380

PATIENT
  Age: 51 Year

DRUGS (7)
  1. MIRTAZAPINE [Suspect]
     Indication: DEPRESSION
  2. ALLOPURINOL [Concomitant]
  3. DOXAZOSIN MESYLATE [Suspect]
     Indication: PRODUCT USED FOR UNKNOWN INDICATION
     Dosage: 4 MG (4 MG, 1 IN 1 D)
  4. CETIRIZINE HCL [Concomitant]
  5. METFORMIN HCL [Suspect]
     Indication: PRODUCT USED FOR UNKNOWN INDICATION
     Dosage: 1500 MG (1500 MG, 1 IN 1 D)
  6. COLCHICINE [Concomitant]
  7. VALSARTAN [Concomitant]

REACTIONS (1)
  - PANCREATITIS ACUTE [None]
